FAERS Safety Report 7098332-4 (Version None)
Quarter: 2010Q4

REPORT INFORMATION
  Report Type: 
  Country: None (occurrence: None)
  Receive Date: 20101112
  Receipt Date: 20101104
  Transmission Date: 20110411
  Serious: No
  Sender: FDA-Public Use
  Company Number: US-PFIZER INC-2010141017

PATIENT
  Sex: Female

DRUGS (6)
  1. NEURONTIN [Suspect]
     Indication: NEURALGIA
     Dosage: 100 MG, 3X/DAY
     Route: 048
     Dates: start: 20091001, end: 20100101
  2. SALBUTAMOL [Concomitant]
     Dosage: UNK
  3. FLEXERIL [Concomitant]
     Dosage: UNK
  4. TRAMADOL [Concomitant]
     Dosage: UNK
  5. LIPITOR [Concomitant]
     Dosage: 80 MG, UNK
  6. THEOPHYLLINE [Concomitant]
     Dosage: 300 MG, UNK

REACTIONS (1)
  - DRUG INEFFECTIVE [None]
